FAERS Safety Report 10410102 (Version 1)
Quarter: 2014Q3

REPORT INFORMATION
  Report Type: Spontaneous
  Country: US (occurrence: None)
  Receive Date: 20140825
  Receipt Date: 20140825
  Transmission Date: 20150326
  Serious: Yes (Other)
  Sender: FDA-Public Use
  Company Number: None

PATIENT
  Age: 72 Year
  Sex: Male
  Weight: 77.11 kg

DRUGS (2)
  1. EXELON [Suspect]
     Active Substance: RIVASTIGMINE TARTRATE
     Indication: PARKINSONISM
     Dosage: 1 DAILY EVERY 24 HOURS ONCE DAILY APPLIED AS MEDICATED PATCH TO SKIN
     Route: 061
     Dates: start: 20140615, end: 20140713
  2. EXELON [Suspect]
     Active Substance: RIVASTIGMINE TARTRATE
     Indication: MEMORY IMPAIRMENT
     Dosage: 1 DAILY EVERY 24 HOURS ONCE DAILY APPLIED AS MEDICATED PATCH TO SKIN
     Route: 061
     Dates: start: 20140615, end: 20140713

REACTIONS (3)
  - Application site swelling [None]
  - Application site pruritus [None]
  - Application site erythema [None]

NARRATIVE: CASE EVENT DATE: 20140717
